FAERS Safety Report 22110052 (Version 1)
Quarter: 2023Q1

REPORT INFORMATION
  Report Type: Spontaneous
  Country: US (occurrence: US)
  Receive Date: 20230317
  Receipt Date: 20230317
  Transmission Date: 20230418
  Serious: No
  Sender: FDA-Public Use
  Company Number: US-MYLANLABS-2023M1025719

PATIENT
  Sex: Female
  Weight: 79.83 kg

DRUGS (1)
  1. LIPITOR [Suspect]
     Active Substance: ATORVASTATIN CALCIUM
     Indication: Blood cholesterol increased
     Dosage: UNK (ONCE DAILY)
     Route: 065

REACTIONS (3)
  - Dry mouth [Unknown]
  - Oral pain [Unknown]
  - Glossodynia [Unknown]
